FAERS Safety Report 10504568 (Version 1)
Quarter: 2014Q3

REPORT INFORMATION
  Report Type: Spontaneous
  Country: US (occurrence: None)
  Receive Date: 20140912
  Receipt Date: 20140912
  Transmission Date: 20150326
  Serious: Yes (Other)
  Sender: FDA-Public Use
  Company Number: 1000066689

PATIENT
  Age: 66 Year
  Sex: Female

DRUGS (2)
  1. OXYGEN. [Concomitant]
     Active Substance: OXYGEN
  2. DALIRESP [Suspect]
     Active Substance: ROFLUMILAST
     Dosage: 500UG (500 MCG, 1 IN 1D) ORAL
     Route: 048

REACTIONS (3)
  - Rhinorrhoea [None]
  - Nausea [None]
  - Sinusitis [None]

NARRATIVE: CASE EVENT DATE: 201404
